FAERS Safety Report 8822140 (Version 1)
Quarter: 2012Q4

REPORT INFORMATION
  Report Type: 
  Country: US (occurrence: US)
  Receive Date: 20121003
  Receipt Date: 20121003
  Transmission Date: 20130627
  Serious: No
  Sender: FDA-Public Use
  Company Number: US-PFIZER INC-2012244117

PATIENT
  Age: 64 Year
  Sex: Male
  Weight: 72.56 kg

DRUGS (3)
  1. CHANTIX [Suspect]
     Indication: SMOKING CESSATION THERAPY
     Dosage: 1 mg, 2x/day
     Route: 048
     Dates: start: 201209
  2. PANTOPRAZOLE [Concomitant]
     Dosage: 40 mg, 1x/day
  3. LIPITOR [Concomitant]
     Indication: HYPERTENSION
     Dosage: 400 mg, 3x/day

REACTIONS (1)
  - Retching [Unknown]
